FAERS Safety Report 14267180 (Version 1)
Quarter: 2017Q4

REPORT INFORMATION
  Report Type: Spontaneous
  Country: US (occurrence: None)
  Receive Date: 20171208
  Receipt Date: 20171208
  Transmission Date: 20180321
  Serious: Yes (Hospitalization)
  Sender: FDA-Public Use
  Company Number: None

PATIENT
  Age: 74 Year
  Sex: Male
  Weight: 82.5 kg

DRUGS (1)
  1. SULFAMETHOXAZOLE/TRIMETHOPRIM [Suspect]
     Active Substance: SULFAMETHOXAZOLE\TRIMETHOPRIM
     Indication: DIABETIC FOOT INFECTION
     Route: 048
     Dates: start: 20170929, end: 20171006

REACTIONS (6)
  - Chest pain [None]
  - Metabolic acidosis [None]
  - Hyperkalaemia [None]
  - Acute kidney injury [None]
  - Hypomagnesaemia [None]
  - Electrocardiogram ST-T change [None]

NARRATIVE: CASE EVENT DATE: 20171006
